FAERS Safety Report 16160527 (Version 2)
Quarter: 2019Q2

REPORT INFORMATION
  Report Type: Report from Study
  Country: US (occurrence: US)
  Receive Date: 20190405
  Receipt Date: 20190408
  Transmission Date: 20190711
  Serious: Yes (Other)
  Sender: FDA-Public Use
  Company Number: US-SUN PHARMACEUTICAL INDUSTRIES LTD-2019R1-204015

PATIENT
  Age: 65 Year
  Sex: Male

DRUGS (11)
  1. LENVIMA [Suspect]
     Active Substance: LENVATINIB
     Dosage: 20 MILLIGRAM, QD
     Route: 048
     Dates: start: 20180625
  2. ONDANSETRON [Suspect]
     Active Substance: ONDANSETRON
     Indication: PRODUCT USED FOR UNKNOWN INDICATION
     Dosage: UNK
     Route: 048
  3. LENVIMA [Suspect]
     Active Substance: LENVATINIB
     Dosage: UNK (14 MG,48 HR)
     Route: 048
     Dates: start: 20180925, end: 20181112
  4. TRAMADOL. [Concomitant]
     Active Substance: TRAMADOL
     Indication: PRODUCT USED FOR UNKNOWN INDICATION
     Dosage: UNK
     Route: 065
  5. OXYCODONE [Concomitant]
     Active Substance: OXYCODONE
     Indication: PRODUCT USED FOR UNKNOWN INDICATION
     Dosage: UNK
     Route: 065
  6. LENVIMA [Suspect]
     Active Substance: LENVATINIB
     Dosage: 14 MILLIGRAM, QD
     Route: 048
     Dates: start: 201807, end: 20180924
  7. LENVIMA [Suspect]
     Active Substance: LENVATINIB
     Dosage: UNK (14 MG,48 HR)
     Route: 048
     Dates: start: 20181114, end: 201901
  8. LENVIMA [Suspect]
     Active Substance: LENVATINIB
     Dosage: 10 MILLIGRAM, DAILY
     Route: 048
     Dates: start: 20190115
  9. MELOXICAM. [Concomitant]
     Active Substance: MELOXICAM
     Indication: PRODUCT USED FOR UNKNOWN INDICATION
     Dosage: UNK
     Route: 065
  10. HYDROCODONE [Concomitant]
     Active Substance: HYDROCODONE
     Indication: PRODUCT USED FOR UNKNOWN INDICATION
     Dosage: UNK
     Route: 065
  11. LENVIMA [Suspect]
     Active Substance: LENVATINIB
     Indication: THYROID CANCER
     Dosage: 24 MILLIGRAM, QD
     Route: 048
     Dates: start: 20180509, end: 201806

REACTIONS (35)
  - Myalgia [Recovering/Resolving]
  - Gait disturbance [Unknown]
  - Headache [Recovering/Resolving]
  - Asthenia [Not Recovered/Not Resolved]
  - Pain in extremity [Unknown]
  - Feeling of body temperature change [Recovering/Resolving]
  - Dehydration [Unknown]
  - Skin mass [Unknown]
  - Back pain [Not Recovered/Not Resolved]
  - Laryngeal oedema [Unknown]
  - Vomiting [Unknown]
  - Decreased appetite [Not Recovered/Not Resolved]
  - Blood glucose increased [Unknown]
  - Back pain [Not Recovered/Not Resolved]
  - Arthralgia [Recovering/Resolving]
  - Aphthous ulcer [Unknown]
  - Diarrhoea [Unknown]
  - Anxiety [Recovering/Resolving]
  - Blood pressure fluctuation [Unknown]
  - Joint stiffness [Not Recovered/Not Resolved]
  - Musculoskeletal pain [Recovering/Resolving]
  - Blood pressure increased [Recovering/Resolving]
  - Musculoskeletal stiffness [Not Recovered/Not Resolved]
  - Cataract [Unknown]
  - Glaucoma [Unknown]
  - Constipation [Not Recovered/Not Resolved]
  - Fatigue [Not Recovered/Not Resolved]
  - Swelling face [Unknown]
  - Nausea [Recovering/Resolving]
  - Dyspnoea [Not Recovered/Not Resolved]
  - Depression [Unknown]
  - Initial insomnia [Unknown]
  - Hypersomnia [Recovering/Resolving]
  - Retching [Not Recovered/Not Resolved]
  - Weight decreased [Not Recovered/Not Resolved]

NARRATIVE: CASE EVENT DATE: 201805
